FAERS Safety Report 19101765 (Version 1)
Quarter: 2021Q2

REPORT INFORMATION
  Report Type: Spontaneous
  Country: CN (occurrence: CN)
  Receive Date: 20210407
  Receipt Date: 20210407
  Transmission Date: 20210717
  Serious: Yes (Hospitalization, Other)
  Sender: FDA-Public Use
  Company Number: CN-ALKEM LABORATORIES LIMITED-CN-ALKEM-2020-07994

PATIENT
  Age: 51 Year
  Sex: Female

DRUGS (6)
  1. SERTRALINE [Concomitant]
     Active Substance: SERTRALINE HYDROCHLORIDE
     Dosage: UNK, DOSE REDUCED
     Route: 065
  2. SULPIRIDE [Concomitant]
     Active Substance: SULPIRIDE
     Indication: MAJOR DEPRESSION
     Dosage: 0.2 GRAM, QD
     Route: 065
  3. ENALAPRIL [Concomitant]
     Active Substance: ENALAPRIL
     Indication: HYPERTENSION
     Dosage: UNK
     Route: 065
  4. QUETIAPINE FUMARATE. [Suspect]
     Active Substance: QUETIAPINE FUMARATE
     Indication: MAJOR DEPRESSION
     Dosage: 100 MILLIGRAM, QD
     Route: 065
     Dates: start: 20190514, end: 20190618
  5. AMITRIPTYLINE [Concomitant]
     Active Substance: AMITRIPTYLINE
     Indication: MAJOR DEPRESSION
     Dosage: 50 MILLIGRAM, QD
     Route: 065
  6. SERTRALINE [Concomitant]
     Active Substance: SERTRALINE HYDROCHLORIDE
     Indication: MAJOR DEPRESSION
     Dosage: 150 MILLIGRAM
     Route: 065
     Dates: start: 20190510, end: 20190618

REACTIONS (1)
  - Rhabdomyolysis [Recovered/Resolved]
